FAERS Safety Report 12978542 (Version 4)
Quarter: 2018Q1

REPORT INFORMATION
  Report Type: Spontaneous
  Country: US (occurrence: US)
  Receive Date: 20161128
  Receipt Date: 20180319
  Transmission Date: 20180508
  Serious: No
  Sender: FDA-Public Use
  Company Number: US-PFIZER INC-2016545772

PATIENT
  Age: 62 Year
  Sex: Male

DRUGS (1)
  1. XELJANZ XR [Suspect]
     Active Substance: TOFACITINIB CITRATE
     Dosage: 11 MG
     Dates: end: 20171208

REACTIONS (13)
  - Tonsillitis [Unknown]
  - Joint swelling [Unknown]
  - Grip strength decreased [Unknown]
  - Oral mucosal blistering [Unknown]
  - Heart rate irregular [Unknown]
  - Synovitis [Unknown]
  - Arthralgia [Unknown]
  - Ear infection [Unknown]
  - Back pain [Unknown]
  - Joint range of motion decreased [Unknown]
  - Musculoskeletal stiffness [Unknown]
  - Tenderness [Unknown]
  - Melanocytic naevus [Unknown]

NARRATIVE: CASE EVENT DATE: 2017
